FAERS Safety Report 10515568 (Version 3)
Quarter: 2016Q2

REPORT INFORMATION
  Report Type: Spontaneous
  Country: GH (occurrence: GH)
  Receive Date: 20141014
  Receipt Date: 20160504
  Transmission Date: 20160815
  Serious: Yes (Death)
  Sender: FDA-Public Use
  Company Number: GH-ROCHE-1474456

PATIENT
  Sex: Female
  Weight: 86 kg

DRUGS (4)
  1. HERCEPTIN [Suspect]
     Active Substance: TRASTUZUMAB
     Indication: BREAST CANCER
     Dosage: UNKNOWN DOSE GIVEN ONCE EVERY WEEK FOR 9 WEEKS
     Route: 042
  2. 5-FU [Concomitant]
     Active Substance: FLUOROURACIL
     Route: 065
     Dates: start: 20120202, end: 20120612
  3. EPIRUBICIN [Concomitant]
     Active Substance: EPIRUBICIN
  4. CYCLOPHOSPHAMIDE. [Concomitant]
     Active Substance: CYCLOPHOSPHAMIDE

REACTIONS (1)
  - Chronic hepatic failure [Fatal]
